FAERS Safety Report 9280296 (Version 1)
Quarter: 2013Q2

REPORT INFORMATION
  Report Type: Spontaneous
  Country: US (occurrence: None)
  Receive Date: 20130507
  Receipt Date: 20130507
  Transmission Date: 20140414
  Serious: Yes (Other)
  Sender: FDA-Public Use
  Company Number: None

PATIENT
  Age: 69 Year
  Sex: Male
  Weight: 95.26 kg

DRUGS (1)
  1. CHLORHEXIDINE [Suspect]
     Indication: KNEE ARTHROPLASTY
     Route: 003
     Dates: start: 20130430, end: 20130430

REACTIONS (2)
  - Application site vesicles [None]
  - Secretion discharge [None]
